FAERS Safety Report 5566288-9 (Version None)
Quarter: 2007Q4

REPORT INFORMATION
  Report Type: 
  Country: None (occurrence: None)
  Receive Date: 20071214
  Receipt Date: 20071130
  Transmission Date: 20080405
  Serious: Yes (Other)
  Sender: FDA-Public Use
  Company Number: 2007AD000117

PATIENT
  Age: 68 Year
  Sex: Female

DRUGS (2)
  1. CEPHALEXIN [Suspect]
     Indication: VULVAL DISORDER
     Dosage: 500 MG; QID
     Dates: start: 20070808, end: 20070811
  2. PROBIOTIC [Concomitant]

REACTIONS (2)
  - DEHYDRATION [None]
  - DIARRHOEA [None]
